FAERS Safety Report 12555429 (Version 2)
Quarter: 2016Q3

REPORT INFORMATION
  Report Type: Spontaneous
  Country: US (occurrence: US)
  Receive Date: 20160714
  Receipt Date: 20160927
  Transmission Date: 20161109
  Serious: No
  Sender: FDA-Public Use
  Company Number: US-009507513-1606USA011175

PATIENT
  Sex: Female

DRUGS (5)
  1. PROGRAF [Concomitant]
     Active Substance: TACROLIMUS\TACROLIMUS ANHYDROUS
  2. LOMOTIL (ATROPINE SULFATE (+) DIPHENOXYLATE HYDROCHLORIDE) [Concomitant]
  3. CHOLESTYRAMINE RESIN [Concomitant]
     Active Substance: CHOLESTYRAMINE
  4. ZEPATIER [Suspect]
     Active Substance: ELBASVIR\GRAZOPREVIR
     Indication: HEPATITIS C
     Dosage: DOSE 100/50 MG TABLET/ ONCE PER DAY (QD)
     Route: 048
  5. BIOTIN [Concomitant]
     Active Substance: BIOTIN

REACTIONS (2)
  - Vomiting [Unknown]
  - Nausea [Unknown]

NARRATIVE: CASE EVENT DATE: 2016
